FAERS Safety Report 8970148 (Version 1)
Quarter: 2012Q4

REPORT INFORMATION
  Report Type: 
  Country: US (occurrence: US)
  Receive Date: 20121218
  Receipt Date: 20121218
  Transmission Date: 20130627
  Serious: No
  Sender: FDA-Public Use
  Company Number: US-ABBOTT-12P-163-0901182-00

PATIENT
  Age: 51 Year
  Sex: Female
  Weight: 56.75 kg

DRUGS (2)
  1. PROMETRIUM [Suspect]
     Indication: MENOPAUSAL DISORDER
     Dosage: At hour of sleep
     Route: 048
     Dates: start: 20120130
  2. DIVIGEL [Concomitant]
     Indication: PRODUCT USED FOR UNKNOWN INDICATION
     Dates: start: 20120130

REACTIONS (4)
  - Oropharyngeal pain [Not Recovered/Not Resolved]
  - Abdominal pain upper [Not Recovered/Not Resolved]
  - Abdominal discomfort [Not Recovered/Not Resolved]
  - Migraine [Not Recovered/Not Resolved]
